FAERS Safety Report 5003949-4 (Version None)
Quarter: 2006Q2

REPORT INFORMATION
  Report Type: 
  Country: None (occurrence: None)
  Receive Date: 20060517
  Receipt Date: 20060501
  Transmission Date: 20061013
  Serious: Yes (Other)
  Sender: FDA-Public Use
  Company Number: NL-SANOFI-SYNTHELABO-A01200603441

PATIENT
  Sex: Female

DRUGS (1)
  1. PLAQUENIL [Suspect]
     Indication: CUTANEOUS LUPUS ERYTHEMATOSUS
     Route: 048
     Dates: start: 20041020, end: 20060115

REACTIONS (3)
  - EYE HAEMORRHAGE [None]
  - INTRAOCULAR PRESSURE INCREASED [None]
  - VISION BLURRED [None]
